FAERS Safety Report 17975641 (Version 7)
Quarter: 2020Q3

REPORT INFORMATION
  Report Type: Report from Study
  Country: US (occurrence: US)
  Receive Date: 20200702
  Receipt Date: 20200825
  Transmission Date: 20201103
  Serious: Yes (Hospitalization)
  Sender: FDA-Public Use
  Company Number: US-ACTELION-A-US2020-206494

PATIENT
  Age: 57 Year
  Sex: Female
  Weight: 49.89 kg

DRUGS (5)
  1. VELETRI [Suspect]
     Active Substance: EPOPROSTENOL
     Dosage: 3 NG/KG, PER MIN
     Route: 042
  2. ORENITRAM [Concomitant]
     Active Substance: TREPROSTINIL
  3. ADCIRCA [Concomitant]
     Active Substance: TADALAFIL
  4. VELETRI [Suspect]
     Active Substance: EPOPROSTENOL
     Indication: PULMONARY ARTERIAL HYPERTENSION
     Dosage: 11 NG/KG, PER MIN
     Route: 042
  5. OPSUMIT [Suspect]
     Active Substance: MACITENTAN
     Indication: PULMONARY ARTERIAL HYPERTENSION
     Dosage: 10 MG, QD
     Route: 048

REACTIONS (13)
  - Catheter site haemorrhage [Unknown]
  - Eye contusion [Unknown]
  - Hospitalisation [Unknown]
  - Catheter management [Unknown]
  - Oedema peripheral [Unknown]
  - Contusion [Unknown]
  - Abdominal pain [Not Recovered/Not Resolved]
  - Dyspnoea exertional [Not Recovered/Not Resolved]
  - Device leakage [Unknown]
  - Device infusion issue [Unknown]
  - Liver disorder [Unknown]
  - Blood disorder [Unknown]
  - Device dislocation [Unknown]

NARRATIVE: CASE EVENT DATE: 20200722
